FAERS Safety Report 25252137 (Version 1)
Quarter: 2025Q2

REPORT INFORMATION
  Report Type: Report from Study
  Country: CA (occurrence: CA)
  Receive Date: 20250429
  Receipt Date: 20250429
  Transmission Date: 20250717
  Serious: Yes (Hospitalization, Other)
  Sender: HLS THERAPEUTICS
  Company Number: CA-HLS-202500991

PATIENT
  Age: 71 Year
  Sex: Male

DRUGS (12)
  1. CLOZARIL [Suspect]
     Active Substance: CLOZAPINE
     Route: 065
  2. CLOZARIL [Suspect]
     Active Substance: CLOZAPINE
     Route: 048
  3. CLOZARIL [Suspect]
     Active Substance: CLOZAPINE
     Route: 065
  4. CLOZARIL [Suspect]
     Active Substance: CLOZAPINE
     Route: 048
  5. Paliparidone sustenna [Concomitant]
     Indication: Product used for unknown indication
     Route: 030
  6. RIVAROXABAN [Concomitant]
     Active Substance: RIVAROXABAN
     Indication: Product used for unknown indication
     Route: 065
  7. SENNA [Concomitant]
     Active Substance: SENNOSIDES
     Indication: Product used for unknown indication
     Route: 065
  8. POLYETHYLENE GLYCOLS [Concomitant]
     Active Substance: POLYETHYLENE GLYCOLS
     Indication: Product used for unknown indication
     Route: 065
  9. FLORINEF ACETATE [Concomitant]
     Active Substance: FLUDROCORTISONE ACETATE
     Indication: Product used for unknown indication
     Route: 065
  10. K CL [Concomitant]
     Indication: Product used for unknown indication
     Route: 065
  11. VITAMIN B12 [Concomitant]
     Active Substance: CYANOCOBALAMIN
     Indication: Product used for unknown indication
     Route: 065
  12. LITHIUM [Concomitant]
     Active Substance: LITHIUM
     Indication: Product used for unknown indication
     Route: 065

REACTIONS (28)
  - Brain injury [Unknown]
  - Cerebral atrophy [Unknown]
  - Diverticulum intestinal [Unknown]
  - Chronic obstructive pulmonary disease [Recovered/Resolved]
  - Chronic obstructive pulmonary disease [Recovered/Resolved]
  - COVID-19 [Unknown]
  - Delirium [Recovered/Resolved]
  - Cholelithiasis [Unknown]
  - Hypokinesia [Unknown]
  - Hyperlipidaemia [Unknown]
  - Jaundice [Unknown]
  - Jugular vein thrombosis [Unknown]
  - Small intestinal resection [Unknown]
  - Renal cyst [Unknown]
  - Left ventricular dysfunction [Unknown]
  - Ejection fraction decreased [Unknown]
  - Dementia [Unknown]
  - Hepatic steatosis [Unknown]
  - Neuroleptic malignant syndrome [Unknown]
  - Orthostatic hypotension [Unknown]
  - Osteoarthritis [Unknown]
  - Pneumonia [Unknown]
  - Portal vein thrombosis [Unknown]
  - Fall [Unknown]
  - Small intestinal obstruction [Recovered/Resolved]
  - Urinary tract infection [Recovered/Resolved]
  - Enterococcal infection [Recovered/Resolved]
  - Vitamin B12 deficiency [Unknown]

NARRATIVE: CASE EVENT DATE: 20060301
